FAERS Safety Report 23693583 (Version 1)
Quarter: 2024Q2

REPORT INFORMATION
  Report Type: Spontaneous
  Country: GB (occurrence: GB)
  Receive Date: 20240401
  Receipt Date: 20240401
  Transmission Date: 20240716
  Serious: Yes (Hospitalization)
  Sender: FDA-Public Use
  Company Number: GB-ACRAF SpA-2024-033910

PATIENT

DRUGS (2)
  1. XCOPRI [Suspect]
     Active Substance: CENOBAMATE
     Indication: Epilepsy
     Dosage: 300 MILLIGRAM, QD (300MG AT NIGHT)
     Route: 048
     Dates: start: 202306
  2. CARBAMAZEPINE [Concomitant]
     Active Substance: CARBAMAZEPINE
     Indication: Epilepsy
     Dosage: 1200 MG (600 MG,2 IN 1 D)
     Route: 065
     Dates: start: 201301

REACTIONS (5)
  - Generalised tonic-clonic seizure [Unknown]
  - Acute kidney injury [Recovered/Resolved]
  - Cardiac arrest [Unknown]
  - Hypertensive end-organ damage [Unknown]
  - Myocarditis [Unknown]

NARRATIVE: CASE EVENT DATE: 20240303
